FAERS Safety Report 13595032 (Version 1)
Quarter: 2017Q2

REPORT INFORMATION
  Report Type: Report from Study
  Country: CN (occurrence: CN)
  Receive Date: 20170531
  Receipt Date: 20170531
  Transmission Date: 20170830
  Serious: Yes (Other)
  Sender: FDA-Public Use
  Company Number: PHHY2017CN078134

PATIENT
  Age: 26 Year
  Sex: Male

DRUGS (104)
  1. BASILIXIMAB [Suspect]
     Active Substance: BASILIXIMAB
     Indication: IMMUNOSUPPRESSANT DRUG THERAPY
     Dosage: 20 MG, QD
     Route: 065
     Dates: start: 20161206, end: 20161206
  2. SODIUM ACETATE. [Concomitant]
     Active Substance: SODIUM ACETATE
     Indication: PRODUCT USED FOR UNKNOWN INDICATION
     Dosage: 1000 ML, QD
     Route: 042
     Dates: start: 20161203, end: 20161203
  3. DEZOCINE [Concomitant]
     Active Substance: DEZOCINE
     Indication: INCISION SITE PAIN
     Dosage: 25 MG, QD
     Route: 042
     Dates: start: 20161203, end: 20161207
  4. INSULIN [Concomitant]
     Active Substance: INSULIN NOS
     Indication: BLOOD POTASSIUM INCREASED
     Dosage: 8 IU, QD
     Route: 042
     Dates: start: 20161215, end: 20161215
  5. SODIUM BICARBONATE. [Concomitant]
     Active Substance: SODIUM BICARBONATE
     Dosage: 2250 ML, QD
     Route: 042
     Dates: start: 20161206, end: 20161206
  6. SODIUM LACTATE. [Concomitant]
     Active Substance: SODIUM LACTATE
     Dosage: 500 ML, QD
     Route: 042
     Dates: start: 20161210, end: 20161212
  7. SODIUM CHLORIDE. [Concomitant]
     Active Substance: SODIUM CHLORIDE
     Indication: PRODUCT USED FOR UNKNOWN INDICATION
     Dosage: 2000 ML, QD
     Route: 042
     Dates: start: 20161204, end: 20161204
  8. METHYLPREDNISOLONE. [Suspect]
     Active Substance: METHYLPREDNISOLONE
     Indication: IMMUNOSUPPRESSANT DRUG THERAPY
     Dosage: 500 MG, QD
     Route: 065
     Dates: start: 20161203, end: 20161205
  9. PREDNISONE. [Suspect]
     Active Substance: PREDNISONE
     Dosage: 30 MG, QD
     Route: 065
     Dates: start: 20161208, end: 20161208
  10. PREDNISONE. [Suspect]
     Active Substance: PREDNISONE
     Dosage: 20 MG, QD
     Route: 065
     Dates: start: 20161209, end: 20161209
  11. TACROLIMUS. [Suspect]
     Active Substance: TACROLIMUS
     Dosage: 4 MG, QD
     Route: 065
     Dates: start: 20170113
  12. ALANYL GLUTAMINE [Concomitant]
     Active Substance: ALANYL GLUTAMINE
     Indication: PRODUCT USED FOR UNKNOWN INDICATION
     Dosage: 20000 MG, QD
     Route: 042
     Dates: start: 20161204, end: 20161205
  13. DOPAMINE [Concomitant]
     Active Substance: DOPAMINE\DOPAMINE HYDROCHLORIDE
     Indication: POLYURIA
     Dosage: 5 MG, BID
     Route: 042
     Dates: start: 20161203, end: 20161203
  14. ETAMSYLATE [Concomitant]
     Active Substance: ETHAMSYLATE
     Indication: HAEMOSTASIS
     Dosage: 2000 MG, QD
     Route: 042
     Dates: start: 20161217, end: 20161217
  15. LANSOPRAZOLE. [Concomitant]
     Active Substance: LANSOPRAZOLE
     Indication: PROPHYLAXIS
     Dosage: 60 MG, QD
     Route: 042
     Dates: start: 20161202, end: 20161203
  16. LANSOPRAZOLE. [Concomitant]
     Active Substance: LANSOPRAZOLE
     Dosage: 60 MG, QD
     Route: 042
     Dates: start: 20161211, end: 20161213
  17. RABEPRAZOLE SODIUM. [Concomitant]
     Active Substance: RABEPRAZOLE SODIUM
     Dosage: 140 MG, QD
     Route: 048
     Dates: start: 20161218, end: 20161218
  18. FUROSEMIDE. [Concomitant]
     Active Substance: FUROSEMIDE
     Dosage: 20 MG, QD
     Route: 042
     Dates: start: 20161221, end: 20161221
  19. TORASEMIDE [Concomitant]
     Active Substance: TORSEMIDE
     Dosage: 60 MG, BID
     Route: 042
     Dates: start: 20161213, end: 20161215
  20. POTASSIUM CHLORIDE. [Concomitant]
     Active Substance: POTASSIUM CHLORIDE
     Dosage: 90 MG, QD
     Route: 042
     Dates: start: 20161206, end: 20161206
  21. SODIUM BICARBONATE. [Concomitant]
     Active Substance: SODIUM BICARBONATE
     Dosage: 125 ML, QD
     Route: 042
     Dates: start: 20161207, end: 20161207
  22. SODIUM BICARBONATE. [Concomitant]
     Active Substance: SODIUM BICARBONATE
     Dosage: 125 ML, QD
     Route: 042
     Dates: start: 20161219, end: 20161219
  23. PHENOBARBITAL. [Concomitant]
     Active Substance: PHENOBARBITAL
     Indication: PROPHYLAXIS
     Dosage: 100 MG, QD
     Route: 030
     Dates: start: 20161202, end: 20161202
  24. BASILIXIMAB [Suspect]
     Active Substance: BASILIXIMAB
     Indication: RENAL TRANSPLANT
     Dosage: 20 MG, QD
     Route: 065
     Dates: start: 20161203, end: 20161203
  25. AMINOMETHYLBENZOIC ACID [Concomitant]
     Active Substance: AMINOMETHYLBENZOIC ACID
     Indication: HAEMOSTASIS
     Dosage: 200 MG, QD
     Route: 042
     Dates: start: 20161217, end: 20161217
  26. DEZOCINE [Concomitant]
     Active Substance: DEZOCINE
     Dosage: 10 MG, QD
     Route: 030
     Dates: start: 20161213, end: 20161213
  27. RABEPRAZOLE SODIUM. [Concomitant]
     Active Substance: RABEPRAZOLE SODIUM
     Dosage: 10 MG, QD
     Route: 048
     Dates: start: 20161221, end: 20161229
  28. FUROSEMIDE. [Concomitant]
     Active Substance: FUROSEMIDE
     Dosage: 200 MG, QD
     Route: 042
     Dates: start: 20161203, end: 20161206
  29. FUROSEMIDE. [Concomitant]
     Active Substance: FUROSEMIDE
     Dosage: 40 MG, QD
     Route: 042
     Dates: start: 20161224, end: 20161225
  30. TORASEMIDE [Concomitant]
     Active Substance: TORSEMIDE
     Indication: POLYURIA
     Dosage: 100 MG, QD
     Route: 042
     Dates: start: 20161211, end: 20161212
  31. TIGECYCLINE. [Concomitant]
     Active Substance: TIGECYCLINE
     Indication: PRODUCT USED FOR UNKNOWN INDICATION
     Dosage: 50 MG, BID
     Route: 042
     Dates: start: 20161203, end: 20161215
  32. DOBUTAMINE HYDROCHLORIDE. [Concomitant]
     Active Substance: DOBUTAMINE HYDROCHLORIDE
     Indication: PROPHYLAXIS
     Dosage: 100 MG, QD
     Route: 042
     Dates: start: 20161203, end: 20161204
  33. TERAZOSIN HYDROCHLORIDE. [Concomitant]
     Active Substance: TERAZOSIN HYDROCHLORIDE
     Dosage: 56 MG, QD
     Route: 048
     Dates: start: 20161218
  34. SODIUM BICARBONATE. [Concomitant]
     Active Substance: SODIUM BICARBONATE
     Dosage: 250 ML, QD
     Route: 042
     Dates: start: 20161216, end: 20161216
  35. SODIUM LACTATE. [Concomitant]
     Active Substance: SODIUM LACTATE
     Indication: PRODUCT USED FOR UNKNOWN INDICATION
     Dosage: 1000 ML, QD
     Route: 042
     Dates: start: 20161203, end: 20161203
  36. CALCIUM [Concomitant]
     Active Substance: CALCIUM
     Indication: PRODUCT USED FOR UNKNOWN INDICATION
     Dosage: 10 ML, QD
     Route: 042
     Dates: start: 20161219, end: 20161219
  37. PHOSPHOCREATINE SODIUM [Concomitant]
     Active Substance: PHOSPHOCREATINE SODIUM
     Indication: PROPHYLAXIS
     Dosage: 2000 MG, QD
     Route: 042
     Dates: start: 20161204, end: 20161204
  38. TACROLIMUS. [Suspect]
     Active Substance: TACROLIMUS
     Dosage: 3.5 MG, QD
     Route: 065
     Dates: start: 20161217, end: 20161219
  39. TACROLIMUS. [Suspect]
     Active Substance: TACROLIMUS
     Dosage: 5.5 MG, QD
     Route: 065
     Dates: start: 20170110, end: 20170112
  40. HEPARIN SODIUM. [Concomitant]
     Active Substance: HEPARIN SODIUM
     Indication: PRODUCT USED FOR UNKNOWN INDICATION
     Dosage: 1.25 OT, QD
     Route: 042
     Dates: start: 20161206, end: 20161206
  41. PHENTOLAMINE MESYLATE. [Concomitant]
     Active Substance: PHENTOLAMINE MESYLATE
     Indication: POLYURIA
     Dosage: 5 MG, BID
     Route: 042
     Dates: start: 20161203, end: 20161203
  42. RABEPRAZOLE SODIUM. [Concomitant]
     Active Substance: RABEPRAZOLE SODIUM
     Indication: PRODUCT USED FOR UNKNOWN INDICATION
     Dosage: 3 MG, QD
     Route: 048
     Dates: start: 20161214
  43. FUROSEMIDE. [Concomitant]
     Active Substance: FUROSEMIDE
     Indication: PROPHYLAXIS
     Dosage: 100 MG, BID
     Route: 042
     Dates: start: 20161203, end: 20161203
  44. FUROSEMIDE. [Concomitant]
     Active Substance: FUROSEMIDE
     Dosage: 40 MG, QD
     Route: 042
     Dates: start: 20161218, end: 20161220
  45. FUROSEMIDE. [Concomitant]
     Active Substance: FUROSEMIDE
     Dosage: 20 MG, QD
     Route: 042
     Dates: start: 20161223, end: 20161223
  46. FUROSEMIDE. [Concomitant]
     Active Substance: FUROSEMIDE
     Dosage: 60 MG, BID
     Route: 042
     Dates: start: 20161227, end: 20161227
  47. CEFMINOX SODIUM [Concomitant]
     Active Substance: CEFMINOX SODIUM
     Dosage: 3000 MG, QD
     Route: 042
     Dates: start: 20161217, end: 20161226
  48. TERAZOSIN HYDROCHLORIDE. [Concomitant]
     Active Substance: TERAZOSIN HYDROCHLORIDE
     Indication: HYPERTENSION
     Dosage: 2 MG, TID
     Route: 048
     Dates: start: 20161210
  49. SODIUM BICARBONATE. [Concomitant]
     Active Substance: SODIUM BICARBONATE
     Dosage: 2000 ML, QD
     Route: 042
     Dates: start: 20161204, end: 20161204
  50. MICAFUNGIN SODIUM [Concomitant]
     Active Substance: MICAFUNGIN SODIUM
     Dosage: 50 MG, QD
     Route: 042
     Dates: start: 20161216, end: 20161219
  51. PREDNISONE. [Suspect]
     Active Substance: PREDNISONE
     Dosage: 10 MG, QD
     Route: 065
     Dates: start: 20161210, end: 20161229
  52. FEBUXOSTAT. [Concomitant]
     Active Substance: FEBUXOSTAT
     Indication: GOUT
     Dosage: 480 MG, QD
     Route: 048
     Dates: start: 20161218, end: 20161218
  53. HEPARIN SODIUM. [Concomitant]
     Active Substance: HEPARIN SODIUM
     Indication: PRODUCT USED FOR UNKNOWN INDICATION
     Dosage: 1.25 OT, QD
     Route: 058
     Dates: start: 20161202, end: 20161202
  54. GLUTATHIONE [Concomitant]
     Active Substance: GLUTATHIONE
     Indication: PRODUCT USED FOR UNKNOWN INDICATION
     Dosage: 200 MG, QD
     Route: 048
     Dates: start: 20161213, end: 20161225
  55. RIBOFLAVIN SODIUM PHOSPHATE [Concomitant]
     Indication: PRODUCT USED FOR UNKNOWN INDICATION
     Dosage: 40 MG, QD
     Route: 042
     Dates: start: 20161204, end: 20161204
  56. LANSOPRAZOLE. [Concomitant]
     Active Substance: LANSOPRAZOLE
     Dosage: 60 MG, BID
     Route: 042
     Dates: start: 20161204, end: 20161210
  57. RABEPRAZOLE SODIUM. [Concomitant]
     Active Substance: RABEPRAZOLE SODIUM
     Dosage: 20 MG, QD
     Route: 048
     Dates: start: 20161201, end: 20161202
  58. FUROSEMIDE. [Concomitant]
     Active Substance: FUROSEMIDE
     Dosage: 160 MG, QD
     Route: 042
     Dates: start: 20161207, end: 20161210
  59. PAPAVERINE HYDROCHLORIDE. [Concomitant]
     Active Substance: PAPAVERINE HYDROCHLORIDE
     Indication: PROPHYLAXIS
     Dosage: 60 MG, QD
     Route: 042
     Dates: start: 20161203, end: 20161206
  60. TORASEMIDE [Concomitant]
     Active Substance: TORSEMIDE
     Dosage: 40 MG, BID
     Route: 042
     Dates: start: 20161212, end: 20161212
  61. POTASSIUM CHLORIDE. [Concomitant]
     Active Substance: POTASSIUM CHLORIDE
     Indication: PRODUCT USED FOR UNKNOWN INDICATION
     Dosage: 80 ML, QD
     Route: 042
     Dates: start: 20161204, end: 20161204
  62. INDAPAMIDE. [Concomitant]
     Active Substance: INDAPAMIDE
     Indication: HYPERTENSION
     Dosage: 1.5 MG, QD
     Route: 048
     Dates: start: 20161208
  63. NITROPRUSSIDE [Concomitant]
     Active Substance: NITROPRUSSIDE
     Dosage: 50 MG, TID
     Route: 042
     Dates: start: 20161209, end: 20161209
  64. SODIUM BICARBONATE. [Concomitant]
     Active Substance: SODIUM BICARBONATE
     Indication: PRODUCT USED FOR UNKNOWN INDICATION
     Dosage: 125 ML, QD
     Route: 042
     Dates: start: 20161203, end: 20161203
  65. SODIUM BICARBONATE. [Concomitant]
     Active Substance: SODIUM BICARBONATE
     Dosage: 250 ML, QD
     Route: 042
     Dates: start: 20161208, end: 20161209
  66. MICAFUNGIN SODIUM [Concomitant]
     Active Substance: MICAFUNGIN SODIUM
     Indication: PROPHYLAXIS
     Dosage: 100 MG, QD
     Route: 042
     Dates: start: 20161203, end: 20161215
  67. LIDOCAINE. [Concomitant]
     Active Substance: LIDOCAINE
     Indication: POLYURIA
     Dosage: 10 ML, BID
     Route: 042
     Dates: start: 20161203, end: 20161203
  68. MYFORTIC [Suspect]
     Active Substance: MYCOPHENOLATE SODIUM
     Indication: IMMUNOSUPPRESSANT DRUG THERAPY
     Dosage: 2160 MG, QD
     Route: 065
     Dates: start: 20161205, end: 20161211
  69. TACROLIMUS. [Suspect]
     Active Substance: TACROLIMUS
     Dosage: 5.5 MG, QD
     Route: 065
     Dates: start: 20161215, end: 20161216
  70. TACROLIMUS. [Suspect]
     Active Substance: TACROLIMUS
     Dosage: 3 MG, QD
     Route: 065
     Dates: start: 20161220, end: 20161226
  71. TACROLIMUS. [Suspect]
     Active Substance: TACROLIMUS
     Dosage: 6 MG, QD
     Route: 065
     Dates: start: 20161231, end: 20170109
  72. TIGECYCLINE. [Concomitant]
     Active Substance: TIGECYCLINE
     Dosage: 50 MG, QD
     Route: 042
     Dates: start: 20161216, end: 20161219
  73. LEVAMLODIPINE BESILATE [Concomitant]
     Active Substance: LEVAMLODIPINE BESYLATE
     Indication: HYPERTENSION
     Dosage: 5 MG, QD
     Route: 042
     Dates: start: 20161208, end: 20161209
  74. LEVAMLODIPINE BESILATE [Concomitant]
     Active Substance: LEVAMLODIPINE BESYLATE
     Dosage: 70 MG, QD
     Route: 048
     Dates: start: 20161221
  75. NITROPRUSSIDE [Concomitant]
     Active Substance: NITROPRUSSIDE
     Indication: HYPERTENSION
     Dosage: 50 MG, TID
     Route: 042
     Dates: start: 20161207, end: 20161207
  76. CEFMINOX SODIUM [Concomitant]
     Active Substance: CEFMINOX SODIUM
     Indication: PRODUCT USED FOR UNKNOWN INDICATION
     Dosage: 500 MG, QD
     Route: 023
     Dates: start: 20161203, end: 20161203
  77. CEFMINOX SODIUM [Concomitant]
     Active Substance: CEFMINOX SODIUM
     Dosage: 3000 MG, BID
     Route: 042
     Dates: start: 20161203, end: 20161215
  78. TERAZOSIN HYDROCHLORIDE. [Concomitant]
     Active Substance: TERAZOSIN HYDROCHLORIDE
     Dosage: 28 MG, QD
     Route: 048
     Dates: start: 20161214, end: 20161214
  79. SODIUM CHLORIDE. [Concomitant]
     Active Substance: SODIUM CHLORIDE
     Dosage: 2000 ML, QD
     Route: 042
     Dates: start: 20161206, end: 20161206
  80. MYFORTIC [Suspect]
     Active Substance: MYCOPHENOLATE SODIUM
     Indication: RENAL TRANSPLANT
     Dosage: 1440 MG, QD
     Route: 065
     Dates: start: 20161204, end: 20161204
  81. MYFORTIC [Suspect]
     Active Substance: MYCOPHENOLATE SODIUM
     Dosage: 1080 MG, QD
     Route: 065
     Dates: start: 20161212
  82. TACROLIMUS. [Suspect]
     Active Substance: TACROLIMUS
     Indication: IMMUNOSUPPRESSANT DRUG THERAPY
     Dosage: 7 MG, QD
     Route: 065
     Dates: start: 20161205, end: 20161212
  83. ARGATROBAN. [Concomitant]
     Active Substance: ARGATROBAN
     Indication: PRODUCT USED FOR UNKNOWN INDICATION
     Dosage: 20 MG, QD
     Route: 042
     Dates: start: 20161206, end: 20161206
  84. SCOPOLAMINE [Concomitant]
     Active Substance: SCOPOLAMINE
     Indication: PRODUCT USED FOR UNKNOWN INDICATION
     Dosage: 300 MG, QD
     Route: 030
     Dates: start: 20161202, end: 20161202
  85. FEBUXOSTAT. [Concomitant]
     Active Substance: FEBUXOSTAT
     Indication: BLOOD URIC ACID INCREASED
     Dosage: 40 MG, QD
     Route: 048
     Dates: start: 20161211, end: 20161225
  86. PAPAVERINE HYDROCHLORIDE. [Concomitant]
     Active Substance: PAPAVERINE HYDROCHLORIDE
     Dosage: 60 MG, QD
     Route: 042
     Dates: start: 20161207, end: 20161210
  87. LEVAMLODIPINE BESILATE [Concomitant]
     Active Substance: LEVAMLODIPINE BESYLATE
     Dosage: 5 MG, BID
     Route: 042
     Dates: start: 20161210
  88. SODIUM BICARBONATE. [Concomitant]
     Active Substance: SODIUM BICARBONATE
     Dosage: 125 ML, QD
     Route: 042
     Dates: start: 20161210, end: 20161210
  89. SODIUM BICARBONATE. [Concomitant]
     Active Substance: SODIUM BICARBONATE
     Dosage: 250 ML, QD
     Route: 042
     Dates: start: 20161211, end: 20161211
  90. SODIUM BICARBONATE. [Concomitant]
     Active Substance: SODIUM BICARBONATE
     Dosage: 375 ML, QD
     Route: 042
     Dates: start: 20161215, end: 20161215
  91. SODIUM BICARBONATE. [Concomitant]
     Active Substance: SODIUM BICARBONATE
     Dosage: 250 ML, QD
     Route: 042
     Dates: start: 20161218, end: 20161218
  92. SODIUM BICARBONATE. [Concomitant]
     Active Substance: SODIUM BICARBONATE
     Indication: PRODUCT USED FOR UNKNOWN INDICATION
     Dosage: 1500 MG, TID
     Route: 048
     Dates: start: 20161215, end: 20161229
  93. PREDNISONE. [Suspect]
     Active Substance: PREDNISONE
     Indication: IMMUNOSUPPRESSANT DRUG THERAPY
     Dosage: 50 MG, QD
     Route: 065
     Dates: start: 20161206, end: 20161206
  94. PREDNISONE. [Suspect]
     Active Substance: PREDNISONE
     Dosage: 40 MG, QD
     Route: 065
     Dates: start: 20161207, end: 20161207
  95. TACROLIMUS. [Suspect]
     Active Substance: TACROLIMUS
     Dosage: 6 MG, QD
     Route: 065
     Dates: start: 20161213, end: 20161214
  96. TACROLIMUS. [Suspect]
     Active Substance: TACROLIMUS
     Dosage: 5 MG, QD
     Route: 065
     Dates: start: 20161227, end: 20161228
  97. TACROLIMUS. [Suspect]
     Active Substance: TACROLIMUS
     Dosage: 5.5 MG, QD
     Route: 065
     Dates: start: 20161229, end: 20161230
  98. FUROSEMIDE. [Concomitant]
     Active Substance: FUROSEMIDE
     Indication: POLYURIA
     Dosage: 100 MG, BID
     Route: 042
     Dates: start: 20161203, end: 20161203
  99. FUROSEMIDE. [Concomitant]
     Active Substance: FUROSEMIDE
     Dosage: 60 MG, QD
     Route: 042
     Dates: start: 20161217, end: 20161217
  100. FUROSEMIDE. [Concomitant]
     Active Substance: FUROSEMIDE
     Dosage: 160 MG, QD
     Route: 042
     Dates: start: 20161226, end: 20161226
  101. LEVAMLODIPINE BESILATE [Concomitant]
     Active Substance: LEVAMLODIPINE BESYLATE
     Dosage: 70 MG, QD
     Route: 048
     Dates: start: 20161215, end: 20161215
  102. NITROPRUSSIDE [Concomitant]
     Active Substance: NITROPRUSSIDE
     Dosage: 50 MG, 4 TIMES
     Route: 042
     Dates: start: 20161208, end: 20161208
  103. SODIUM BICARBONATE. [Concomitant]
     Active Substance: SODIUM BICARBONATE
     Dosage: 250 ML, BID
     Route: 042
     Dates: start: 20161214, end: 20161214
  104. TALCID [Concomitant]
     Active Substance: HYDROTALCITE
     Indication: PROPHYLAXIS
     Dosage: 500 MG, TID
     Route: 048
     Dates: start: 20161201, end: 20161202

REACTIONS (14)
  - Abdominal distension [Recovering/Resolving]
  - Anaemia [Recovering/Resolving]
  - Cough [Recovering/Resolving]
  - Pleural effusion [Not Recovered/Not Resolved]
  - Ascites [Not Recovered/Not Resolved]
  - Blood glucose increased [Unknown]
  - Blood urea increased [Unknown]
  - Neutrophil count increased [Unknown]
  - White blood cell count increased [Unknown]
  - Blood creatinine increased [Unknown]
  - Glomerular filtration rate decreased [Unknown]
  - Lymphocyte count decreased [Unknown]
  - Lung infection [Recovering/Resolving]
  - Haemoglobin decreased [Unknown]

NARRATIVE: CASE EVENT DATE: 20161203
